FAERS Safety Report 12607019 (Version 3)
Quarter: 2016Q4

REPORT INFORMATION
  Report Type: Spontaneous
  Country: US (occurrence: US)
  Receive Date: 20160729
  Receipt Date: 20161024
  Transmission Date: 20170207
  Serious: Yes (Hospitalization, Other)
  Sender: FDA-Public Use
  Company Number: US-PFIZER INC-2016359441

PATIENT
  Age: 65 Year
  Sex: Male

DRUGS (20)
  1. PLAVIX [Concomitant]
     Active Substance: CLOPIDOGREL BISULFATE
     Dosage: 75 MG, 1X/DAY (AM)
  2. BUPROPION HCL [Concomitant]
     Active Substance: BUPROPION HYDROCHLORIDE
     Dosage: 150 MG, 1X/DAY (AM)
  3. LOPERAMIDE [Concomitant]
     Active Substance: LOPERAMIDE
     Dosage: 2 MG, 2X/DAY (BREAKFAST/BEDTIME)
  4. TRIAZOLAM. [Concomitant]
     Active Substance: TRIAZOLAM
     Dosage: 0.25 MG, 1X/DAY (BEDTIME)
  5. LORAZEPAM. [Concomitant]
     Active Substance: LORAZEPAM
     Dosage: 1 MG, 3X/DAY
  6. CELECOXIB. [Concomitant]
     Active Substance: CELECOXIB
     Dosage: 300 MG, 2X/DAY (BREAKFAST /DINNER)
  7. BUTAL-ACET-CAFF [Concomitant]
     Dosage: UNK, AS NEEDED (1 EVERY 6 )((BUTALBITAL: 50 MG; CAFFEINE: 40 MG; AND PARACETAMOL: 325 MG.)
  8. GABAPENTIN. [Concomitant]
     Active Substance: GABAPENTIN
     Dosage: 600 MG, 1X/DAY (2 AT BEDTIME)
  9. XELJANZ XR [Suspect]
     Active Substance: TOFACITINIB CITRATE
     Indication: COLITIS ULCERATIVE
  10. DEXILANT [Concomitant]
     Active Substance: DEXLANSOPRAZOLE
     Dosage: 30 MG, AS NEEDED (AM)
  11. MERCAPTOPURINE. [Concomitant]
     Active Substance: MERCAPTOPURINE
     Dosage: 75 MG, 1X/DAY (AM)
  12. BACLOFEN. [Concomitant]
     Active Substance: BACLOFEN
     Dosage: 20 MG, 3X/DAY
  13. ZOLPIDEM TARTRATE. [Concomitant]
     Active Substance: ZOLPIDEM TARTRATE
     Dosage: 10 MG, 1X/DAY (BEDTIME)
  14. HYDROMORPHONE [Concomitant]
     Active Substance: HYDROMORPHONE
     Dosage: 4 MG, AS NEEDED (1 EVERY 6)
  15. CALCITROL [Concomitant]
     Active Substance: CALCITRIOL
     Dosage: 0.25 MG, 1X/DAY (AM)
  16. XELJANZ XR [Suspect]
     Active Substance: TOFACITINIB CITRATE
     Indication: OSTEOARTHRITIS
  17. RANITIDINE. [Concomitant]
     Active Substance: RANITIDINE
     Dosage: 300 MG, 1X/DAY (AM)
  18. TRAZODONE [Concomitant]
     Active Substance: TRAZODONE HYDROCHLORIDE
     Dosage: 50 MG, 1X/DAY (AM)
  19. XELJANZ XR [Suspect]
     Active Substance: TOFACITINIB CITRATE
     Indication: RHEUMATOID ARTHRITIS
     Dosage: 11 MG, 1X/DAY (AM)
     Dates: start: 201604
  20. AMITRIPTYLINE [Concomitant]
     Active Substance: AMITRIPTYLINE
     Dosage: 75 MG, 1X/DAY (BEDTIME)

REACTIONS (1)
  - Incision site infection [Not Recovered/Not Resolved]
